FAERS Safety Report 22353299 (Version 1)
Quarter: 2023Q2

REPORT INFORMATION
  Report Type: Spontaneous
  Country: RU (occurrence: None)
  Receive Date: 20230523
  Receipt Date: 20230523
  Transmission Date: 20230721
  Serious: Yes (Death, Other)
  Sender: FDA-Public Use
  Company Number: RU-ROCHE-3352543

PATIENT
  Age: 11 Year
  Sex: Male

DRUGS (1)
  1. EVRYSDI [Suspect]
     Active Substance: RISDIPLAM
     Indication: Spinal muscular atrophy
     Route: 065
     Dates: start: 202112

REACTIONS (3)
  - Hepatitis viral [Unknown]
  - Cytomegalovirus infection [Fatal]
  - Multiple organ dysfunction syndrome [Unknown]
